FAERS Safety Report 6572063-9 (Version None)
Quarter: 2010Q1

REPORT INFORMATION
  Report Type: 
  Country: None (occurrence: None)
  Receive Date: 20100205
  Receipt Date: 20100125
  Transmission Date: 20100710
  Serious: Yes (Other)
  Sender: FDA-Public Use
  Company Number: US-WATSON-2010-00893

PATIENT
  Age: 65 Year
  Sex: Male

DRUGS (5)
  1. PREDNISONE [Suspect]
     Indication: POLYNEUROPATHY
     Dosage: 6-35 MG DAILY
     Dates: start: 20010101, end: 20011001
  2. PREDNISONE [Suspect]
     Dosage: 9-30 MG DAILY
     Dates: start: 19960101
  3. AZATHIOPRINE [Suspect]
     Indication: POLYNEUROPATHY
     Dosage: 200 MG DAILY
  4. METHOTREXATE [Suspect]
     Indication: POLYNEUROPATHY
     Dosage: 7.5 TO 30 MG WEEKLY
  5. MYCOPHENOLATE MOFETIL [Suspect]
     Indication: POLYNEUROPATHY
     Dosage: 2500 MG DAILY

REACTIONS (2)
  - CENTRAL NERVOUS SYSTEM LYMPHOMA [None]
  - EPSTEIN-BARR VIRUS INFECTION [None]
